FAERS Safety Report 6012882-0 (Version None)
Quarter: 2008Q4

REPORT INFORMATION
  Report Type: 
  Country: None (occurrence: None)
  Receive Date: 20081219
  Receipt Date: 20081215
  Transmission Date: 20090506
  Serious: Yes (Hospitalization)
  Sender: FDA-Public Use
  Company Number: FR-BRISTOL-MYERS SQUIBB COMPANY-14444228

PATIENT
  Age: 3 Year
  Sex: Female

DRUGS (11)
  1. ACETAMINOPHEN [Suspect]
     Indication: VIRAL INFECTION
  2. AMIKACIN SULFATE [Suspect]
     Indication: VIRAL INFECTION
  3. AMOXICILLIN TRIHYDRATE [Suspect]
     Indication: VIRAL INFECTION
  4. ROCEPHIN [Suspect]
     Indication: VIRAL INFECTION
  5. FORTUM [Suspect]
     Indication: VIRAL INFECTION
  6. NALBUPHINE HCL [Suspect]
     Indication: VIRAL INFECTION
  7. FUCIDINE CAP [Suspect]
     Indication: VIRAL INFECTION
  8. HEXOMEDINE [Suspect]
     Indication: VIRAL INFECTION
  9. OFLOXACIN [Suspect]
     Indication: VIRAL INFECTION
  10. VANCOMYCIN [Suspect]
     Indication: VIRAL INFECTION
  11. ATARAX [Suspect]
     Indication: VIRAL INFECTION

REACTIONS (1)
  - TOXIC EPIDERMAL NECROLYSIS [None]
